FAERS Safety Report 9712481 (Version 1)
Quarter: 2013Q4

REPORT INFORMATION
  Report Type: Spontaneous
  Country: US (occurrence: US)
  Receive Date: 20131126
  Receipt Date: 20131126
  Transmission Date: 20140711
  Serious: No
  Sender: FDA-Public Use
  Company Number: US-BRISTOL-MYERS SQUIBB COMPANY-19185123

PATIENT
  Age: 69 Year
  Sex: Female
  Weight: 92.97 kg

DRUGS (4)
  1. BYDUREON [Suspect]
     Indication: TYPE 2 DIABETES MELLITUS
  2. GLUCOVANCE [Concomitant]
     Dosage: 1DF:2TABS
     Route: 048
  3. LANTUS [Concomitant]
  4. INSULIN [Concomitant]
     Route: 058

REACTIONS (1)
  - Injection site extravasation [Recovered/Resolved]
